FAERS Safety Report 4368625-X (Version None)
Quarter: 2004Q2

REPORT INFORMATION
  Report Type: 
  Country: None (occurrence: None)
  Receive Date: 20040525
  Receipt Date: 20040517
  Transmission Date: 20050107
  Serious: Yes (Hospitalization)
  Sender: FDA-Public Use
  Company Number: 04P-013-0255064-00

PATIENT
  Age: 51 Year
  Sex: Female
  Weight: 95 kg

DRUGS (3)
  1. LIPANTHYL (TRICOR) (FENOFIBRATE) (FENOFIBRATE) [Suspect]
     Indication: HYPERCHOLESTEROLAEMIA
     Dosage: 267 MG, 1 IN 1 D, PER ORAL
     Route: 048
     Dates: start: 20030425
  2. CHLORTALIDONE [Suspect]
     Dosage: 50 MG, 1 IN 1 D
     Dates: start: 20021001, end: 20030501
  3. BISOPROLOL [Concomitant]

REACTIONS (3)
  - BLOOD POTASSIUM INCREASED [None]
  - RENAL FAILURE ACUTE [None]
  - SKIN DISCOLOURATION [None]
